FAERS Safety Report 6375423-4 (Version None)
Quarter: 2009Q3

REPORT INFORMATION
  Report Type: 
  Country: None (occurrence: None)
  Receive Date: 20090917
  Receipt Date: 20090917
  Transmission Date: 20100115
  Serious: Yes (Life-Threatening, Hospitalization)
  Sender: FDA-Public Use
  Company Number: None

PATIENT
  Sex: Male

DRUGS (3)
  1. NOVOLIN R [Suspect]
     Dosage: 90 UNITS DAILY IV DRIP
     Route: 041
  2. LANTUS [Suspect]
     Dosage: 50 UNITS DAILY SQ
     Route: 058
  3. TPN [Suspect]

REACTIONS (2)
  - HYPOGLYCAEMIA [None]
  - UNRESPONSIVE TO STIMULI [None]
